FAERS Safety Report 9119672 (Version 1)
Quarter: 2013Q1

REPORT INFORMATION
  Report Type: Spontaneous
  Country: US (occurrence: None)
  Receive Date: 20130130
  Receipt Date: 20130130
  Transmission Date: 20140127
  Serious: Yes (Other)
  Sender: FDA-Public Use
  Company Number: AUR-APL-2013-01010

PATIENT
  Age: 58 Year
  Sex: Female
  Weight: 61.68 kg

DRUGS (2)
  1. VENLAFAXINE [Suspect]
     Indication: DEPRESSION
     Route: 048
     Dates: start: 2012, end: 2012
  2. NORVASC (AMLODIPINE BESILATE) [Suspect]
     Indication: HYPERTENSION
     Dosage: 1 IN 1 DAY
     Route: 048

REACTIONS (10)
  - Mental impairment [None]
  - Malaise [None]
  - Sedation [None]
  - Feeling abnormal [None]
  - Sluggishness [None]
  - Nervousness [None]
  - Discomfort [None]
  - Feeling jittery [None]
  - Incorrect dose administered [None]
  - Drug ineffective [None]
